FAERS Safety Report 8550939-0 (Version None)
Quarter: 2012Q3

REPORT INFORMATION
  Report Type: 
  Country: None (occurrence: None)
  Receive Date: 20120730
  Receipt Date: 20120727
  Transmission Date: 20120928
  Serious: Yes (Other)
  Sender: FDA-Public Use
  Company Number: NO-PFIZER INC-2012134608

PATIENT
  Age: 62 Year
  Sex: Male

DRUGS (4)
  1. EFFEXOR [Suspect]
     Dosage: 75 MG, 2X/DAY
  2. EFFEXOR [Suspect]
     Indication: DEPRESSION
     Dosage: 75 MG MORNING, 150 MG EVENING
     Dates: start: 20111004
  3. REMERON [Concomitant]
     Dosage: 60 MG, UNK
  4. OXAZEPAM [Concomitant]
     Dosage: 30 MG, UNK

REACTIONS (1)
  - LIPASE INCREASED [None]
